FAERS Safety Report 5636684-X (Version None)
Quarter: 2008Q1

REPORT INFORMATION
  Report Type: 
  Country: None (occurrence: None)
  Receive Date: 20080219
  Receipt Date: 20080219
  Transmission Date: 20080703
  Serious: Yes (Other)
  Sender: FDA-Public Use
  Company Number: None

PATIENT
  Age: 64 Year
  Sex: Female
  Weight: 60.3284 kg

DRUGS (3)
  1. OXALIPLATIN [Suspect]
     Indication: COLON CANCER
     Dosage: 140 MG  Q 2 WEEKS
     Dates: start: 20080122
  2. OXALIPLATIN [Suspect]
     Indication: COLON CANCER
     Dosage: 140 MG  Q 2 WEEKS
     Dates: start: 20080205
  3. OXALIPLATIN [Suspect]
     Indication: COLON CANCER
     Dosage: 140 MG  Q 2 WEEKS
     Dates: start: 20080218

REACTIONS (4)
  - DYSPNOEA [None]
  - MUSCLE TIGHTNESS [None]
  - MUSCULOSKELETAL STIFFNESS [None]
  - TONGUE DISORDER [None]
